FAERS Safety Report 4463647-2 (Version None)
Quarter: 2004Q3

REPORT INFORMATION
  Report Type: 
  Country: None (occurrence: None)
  Receive Date: 20040929
  Receipt Date: 20040913
  Transmission Date: 20050211
  Serious: Yes (Other)
  Sender: FDA-Public Use
  Company Number: GBS040915549

PATIENT
  Age: 71 Year
  Sex: Female
  Weight: 51 kg

DRUGS (2)
  1. RALOXIFENE HCL [Suspect]
     Indication: OSTEOPOROSIS PROPHYLAXIS
     Dosage: 60 MG DAY
     Dates: start: 20030325
  2. ADCAL-D3 [Concomitant]

REACTIONS (2)
  - ATRIAL FIBRILLATION [None]
  - DYSPEPSIA [None]
